FAERS Safety Report 5238547-0 (Version None)
Quarter: 2007Q1

REPORT INFORMATION
  Report Type: 
  Country: None (occurrence: None)
  Receive Date: 20070215
  Receipt Date: 20070208
  Transmission Date: 20070707
  Serious: Yes (Life-Threatening, Hospitalization, Other)
  Sender: FDA-Public Use
  Company Number: GB-GLAXOSMITHKLINE-B0458436A

PATIENT
  Age: 61 Year
  Sex: Male

DRUGS (5)
  1. AUGMENTIN '125' [Suspect]
     Indication: HERNIA REPAIR
     Dosage: 2ML UNKNOWN
     Route: 042
     Dates: start: 20070124, end: 20070124
  2. VOLTAREN [Suspect]
     Indication: HERNIA REPAIR
     Dosage: 50MG UNKNOWN
     Route: 042
  3. FENTANYL [Concomitant]
     Route: 065
  4. MORPHINE [Concomitant]
     Route: 065
  5. PROPOFOL [Concomitant]
     Route: 065

REACTIONS (4)
  - ANAPHYLACTIC REACTION [None]
  - BRADYCARDIA [None]
  - CARDIAC ARREST [None]
  - HYPOTENSION [None]
